FAERS Safety Report 16767026 (Version 1)
Quarter: 2019Q4

REPORT INFORMATION
  Report Type: Spontaneous
  Country: US (occurrence: US)
  Receive Date: 20190902
  Receipt Date: 20190902
  Transmission Date: 20200122
  Serious: No
  Sender: FDA-Public Use
  Company Number: None

PATIENT
  Age: 5 Month
  Sex: Male
  Weight: 6.64 kg

DRUGS (1)
  1. DG HEALTH MAXIMUM REDNESS RELIEF [Suspect]
     Active Substance: GLYCERIN\NAPHAZOLINE HYDROCHLORIDE
     Indication: EYE LUBRICATION THERAPY
     Dosage: ?          QUANTITY:1 DROP(S);?
     Route: 047
     Dates: start: 20190901, end: 20190901

REACTIONS (4)
  - Mydriasis [None]
  - Product administered to patient of inappropriate age [None]
  - Instillation site reaction [None]
  - Product label confusion [None]

NARRATIVE: CASE EVENT DATE: 20190901
